FAERS Safety Report 8494116-0 (Version None)
Quarter: 2012Q3

REPORT INFORMATION
  Report Type: 
  Country: None (occurrence: None)
  Receive Date: 20120702
  Receipt Date: 20120702
  Transmission Date: 20120928
  Serious: Yes (Hospitalization, Disabling)
  Sender: FDA-Public Use
  Company Number: None

PATIENT
  Age: 64 Year
  Sex: Male
  Weight: 72.72 kg

DRUGS (1)
  1. LUPRON [Suspect]
     Indication: PROSTATE CANCER
     Dosage: HE CAN'T REMEMBER DOSAGES   I.M.
     Route: 030
     Dates: start: 20080101, end: 20090901

REACTIONS (2)
  - MUSCULAR WEAKNESS [None]
  - DYSPNOEA [None]
